FAERS Safety Report 5399072-X (Version None)
Quarter: 2007Q3

REPORT INFORMATION
  Report Type: 
  Country: None (occurrence: None)
  Receive Date: 20070727
  Receipt Date: 20070418
  Transmission Date: 20080115
  Serious: No
  Sender: FDA-Public Use
  Company Number: US-BAUSCH-2007BL001268

PATIENT
  Age: 79 Year
  Sex: Male
  Weight: 78 kg

DRUGS (6)
  1. NEOMYCIN + POLYMYXIN B SULFATES + DEXAMETHASONE [Suspect]
     Indication: EYE IRRITATION
     Route: 047
     Dates: start: 20070409, end: 20070419
  2. NEOMYCIN + POLYMYXIN B SULFATES + DEXAMETHASONE [Suspect]
     Indication: EYE PRURITUS
     Route: 047
     Dates: start: 20070409, end: 20070419
  3. NEOMYCIN + POLYMYXIN B SULFATES + DEXAMETHASONE [Suspect]
     Indication: ASTHENOPIA
     Route: 047
     Dates: start: 20070409, end: 20070419
  4. NASAREL [Concomitant]
  5. OMEPRAZOLE [Concomitant]
  6. TERAZOSIN HCL [Concomitant]

REACTIONS (1)
  - VISION BLURRED [None]
